FAERS Safety Report 23433515 (Version 1)
Quarter: 2024Q1

REPORT INFORMATION
  Report Type: Spontaneous
  Country: US (occurrence: US)
  Receive Date: 20240123
  Receipt Date: 20240123
  Transmission Date: 20240410
  Serious: No
  Sender: FDA-Public Use
  Company Number: US-PFIZER INC-PV202300062701

PATIENT
  Age: 72 Year

DRUGS (1)
  1. TIKOSYN [Suspect]
     Active Substance: DOFETILIDE
     Indication: Atrial fibrillation
     Dosage: 250 UG, 2X/DAY (TAKE ONE CAPSULE BY MOUTH EVERY 12 HOURS)
     Route: 048

REACTIONS (2)
  - Fatigue [Unknown]
  - Off label use [Unknown]
